FAERS Safety Report 4678254-6 (Version None)
Quarter: 2005Q2

REPORT INFORMATION
  Report Type: 
  Country: None (occurrence: None)
  Receive Date: 20050601
  Receipt Date: 20050527
  Transmission Date: 20051028
  Serious: Yes (Death, Life-Threatening)
  Sender: FDA-Public Use
  Company Number: 200511793FR

PATIENT
  Age: 95 Year
  Sex: Female

DRUGS (7)
  1. LASILIX [Suspect]
     Indication: ESSENTIAL HYPERTENSION
     Route: 048
  2. HYZAAR [Suspect]
     Indication: ESSENTIAL HYPERTENSION
     Route: 048
     Dates: end: 20050312
  3. MOTILIUM [Concomitant]
     Indication: NAUSEA
     Route: 048
  4. STABLON [Concomitant]
     Indication: DEPRESSION
     Route: 048
  5. MOPRAL [Concomitant]
     Indication: GASTRIC ULCER HAEMORRHAGE
     Route: 048
  6. PLAVIX [Concomitant]
     Indication: EMBOLISM
     Route: 048
  7. GINKOR FORT [Concomitant]
     Route: 048

REACTIONS (8)
  - APHASIA [None]
  - C-REACTIVE PROTEIN INCREASED [None]
  - COMA [None]
  - DEHYDRATION [None]
  - GENERAL PHYSICAL HEALTH DETERIORATION [None]
  - HYPOKALAEMIA [None]
  - MOTOR DYSFUNCTION [None]
  - SOMNOLENCE [None]
